FAERS Safety Report 18065935 (Version 3)
Quarter: 2020Q3

REPORT INFORMATION
  Report Type: Report from Study
  Country: US (occurrence: US)
  Receive Date: 20200724
  Receipt Date: 20200825
  Transmission Date: 20201103
  Serious: No
  Sender: FDA-Public Use
  Company Number: US-GLAXOSMITHKLINE-US2020AMR105236

PATIENT
  Sex: Female

DRUGS (2)
  1. NIRAPARIB [Suspect]
     Active Substance: NIRAPARIB
     Dosage: 300 MG, QD
     Dates: start: 20200629
  2. NIRAPARIB [Suspect]
     Active Substance: NIRAPARIB
     Indication: OVARIAN CANCER
     Dosage: 300 MG, QD
     Dates: start: 20200529

REACTIONS (13)
  - Fatigue [Not Recovered/Not Resolved]
  - Anxiety [Unknown]
  - Hypertension [Recovering/Resolving]
  - Platelet count decreased [Unknown]
  - Asthenia [Not Recovered/Not Resolved]
  - Agitation [Unknown]
  - Carbohydrate antigen 125 increased [Unknown]
  - Thyroid hormones increased [Unknown]
  - Nervousness [Unknown]
  - Blood count abnormal [Unknown]
  - Constipation [Recovered/Resolved]
  - Feeling jittery [Not Recovered/Not Resolved]
  - Condition aggravated [Not Recovered/Not Resolved]
